FAERS Safety Report 5904374-1 (Version None)
Quarter: 2008Q3

REPORT INFORMATION
  Report Type: 
  Country: None (occurrence: None)
  Receive Date: 20080930
  Receipt Date: 20080930
  Transmission Date: 20090109
  Serious: Yes (Other)
  Sender: FDA-Public Use
  Company Number: None

PATIENT
  Age: 59 Year
  Sex: Female
  Weight: 65.7716 kg

DRUGS (2)
  1. ALENDRONATE SODIUM [Suspect]
     Indication: FEMORAL NECK FRACTURE
     Dosage: 70 MG WEEKLY PO, ONE DOSE ONLY
     Route: 048
     Dates: start: 20080909, end: 20080909
  2. ALENDRONATE SODIUM [Suspect]
     Indication: PROPHYLAXIS
     Dosage: 70 MG WEEKLY PO, ONE DOSE ONLY
     Route: 048
     Dates: start: 20080909, end: 20080909

REACTIONS (3)
  - ARTHRALGIA [None]
  - IMPAIRED HEALING [None]
  - MYALGIA [None]
